FAERS Safety Report 26016138 (Version 1)
Quarter: 2025Q4

REPORT INFORMATION
  Report Type: Spontaneous
  Country: BR (occurrence: BR)
  Receive Date: 20251110
  Receipt Date: 20251110
  Transmission Date: 20260117
  Serious: Yes (Hospitalization, Other)
  Sender: ALEXION PHARMACEUTICALS
  Company Number: BR-AstraZeneca-CH-00986589A

PATIENT
  Age: 64 Year
  Sex: Male

DRUGS (1)
  1. LOKELMA [Suspect]
     Active Substance: SODIUM ZIRCONIUM CYCLOSILICATE
     Indication: Hyperkalaemia
     Dosage: UNK

REACTIONS (1)
  - Aspiration [Unknown]
